FAERS Safety Report 4304242-5 (Version None)
Quarter: 2004Q1

REPORT INFORMATION
  Report Type: 
  Country: None (occurrence: None)
  Receive Date: 20040225
  Receipt Date: 20040213
  Transmission Date: 20041129
  Serious: Yes (Hospitalization)
  Sender: FDA-Public Use
  Company Number: WAES 0402AUS00185

PATIENT
  Sex: Male

DRUGS (2)
  1. FLUOXETINE HCL [Concomitant]
     Indication: DEPRESSION
     Route: 048
     Dates: start: 20000715
  2. ZOCOR [Suspect]
     Route: 048
     Dates: start: 20010215, end: 20030713

REACTIONS (3)
  - BLOOD CREATINE PHOSPHOKINASE ABNORMAL [None]
  - MUSCLE CRAMP [None]
  - MYALGIA [None]
